FAERS Safety Report 10426957 (Version 1)
Quarter: 2014Q3

REPORT INFORMATION
  Report Type: Spontaneous
  Country: US (occurrence: None)
  Receive Date: 20140902
  Receipt Date: 20140902
  Transmission Date: 20150326
  Serious: Yes (Hospitalization)
  Sender: FDA-Public Use
  Company Number: None

PATIENT
  Age: 45 Year
  Sex: Female
  Weight: 68.04 kg

DRUGS (1)
  1. OXCARBAZEPINE. [Suspect]
     Active Substance: OXCARBAZEPINE
     Indication: BIPOLAR DISORDER
     Route: 048
     Dates: start: 20140822, end: 20140828

REACTIONS (4)
  - Pruritus [None]
  - Burning sensation [None]
  - Stevens-Johnson syndrome [None]
  - Hypersensitivity [None]

NARRATIVE: CASE EVENT DATE: 20140828
